FAERS Safety Report 4613729-7 (Version None)
Quarter: 2005Q1

REPORT INFORMATION
  Report Type: 
  Country: None (occurrence: None)
  Receive Date: 20050321
  Receipt Date: 20050308
  Transmission Date: 20050727
  Serious: Yes (Hospitalization)
  Sender: FDA-Public Use
  Company Number: GB-GLAXOSMITHKLINE-B0374714A

PATIENT
  Age: 22 Year
  Sex: Female

DRUGS (4)
  1. PARACETAMOL [Suspect]
     Dosage: 16TAB PER DAY
     Route: 048
  2. ABILIFY [Suspect]
     Indication: SCHIZOAFFECTIVE DISORDER
     Dosage: 15MG PER DAY
     Route: 048
     Dates: start: 20040826
  3. DEPAKOTE [Suspect]
     Dosage: 16TAB PER DAY
     Route: 048
  4. FLUOXETINE [Suspect]
     Dosage: 10TAB PER DAY
     Route: 048

REACTIONS (6)
  - DEPRESSION [None]
  - DRUG ABUSER [None]
  - INTENTIONAL MISUSE [None]
  - INTERNATIONAL NORMALISED RATIO INCREASED [None]
  - MULTIPLE DRUG OVERDOSE ACCIDENTAL [None]
  - SUICIDE ATTEMPT [None]
